FAERS Safety Report 12299100 (Version 1)
Quarter: 2016Q2

REPORT INFORMATION
  Report Type: Spontaneous
  Country: US (occurrence: None)
  Receive Date: 20160422
  Receipt Date: 20160422
  Transmission Date: 20160815
  Serious: No
  Sender: FDA-Public Use
  Company Number: None

PATIENT
  Sex: Female

DRUGS (4)
  1. GLIPIZIDE. [Suspect]
     Active Substance: GLIPIZIDE
  2. METFORMIN [Suspect]
     Active Substance: METFORMIN HYDROCHLORIDE
  3. JANUVIA [Suspect]
     Active Substance: SITAGLIPTIN PHOSPHATE
  4. OMEPRAZOLE. [Suspect]
     Active Substance: OMEPRAZOLE

REACTIONS (4)
  - Renal failure [None]
  - Arthralgia [None]
  - Insomnia [None]
  - Weight decreased [None]
